FAERS Safety Report 18889273 (Version 8)
Quarter: 2021Q3

REPORT INFORMATION
  Report Type: Report from Study
  Country: US (occurrence: US)
  Receive Date: 20210213
  Receipt Date: 20210928
  Transmission Date: 20211014
  Serious: Yes (Other)
  Sender: FDA-Public Use
  Company Number: NVSC2021US034068

PATIENT
  Sex: Female

DRUGS (2)
  1. COSENTYX [Suspect]
     Active Substance: SECUKINUMAB
     Dosage: 300 MG, QMO
     Route: 058
  2. COSENTYX [Suspect]
     Active Substance: SECUKINUMAB
     Indication: PSORIASIS
     Dosage: 300 MG/KG
     Route: 058

REACTIONS (5)
  - Basal cell carcinoma [Unknown]
  - Skin lesion [Unknown]
  - Chills [Unknown]
  - Pain [Unknown]
  - Asthenia [Unknown]
